FAERS Safety Report 12786215 (Version 2)
Quarter: 2016Q4

REPORT INFORMATION
  Report Type: Spontaneous
  Country: US (occurrence: US)
  Receive Date: 20160927
  Receipt Date: 20161025
  Transmission Date: 20170207
  Serious: Yes (Hospitalization)
  Sender: FDA-Public Use
  Company Number: US-SMITH AND NEPHEW, INC-2016SMT00832

PATIENT
  Age: 63 Year
  Sex: Male

DRUGS (11)
  1. ALLOPURINOL. [Concomitant]
     Active Substance: ALLOPURINOL
  2. RENVELA [Concomitant]
     Active Substance: SEVELAMER CARBONATE
  3. REGRANEX [Suspect]
     Active Substance: BECAPLERMIN
     Indication: DIABETIC ULCER
     Dosage: UNK, ONCE
     Route: 061
     Dates: start: 20160822
  4. METOPROLOL. [Concomitant]
     Active Substance: METOPROLOL
  5. FLOMAX [Concomitant]
     Active Substance: TAMSULOSIN HYDROCHLORIDE
  6. INSULIN REGULAR [Concomitant]
     Active Substance: INSULIN NOS
  7. VITAMIN D3 [Concomitant]
     Active Substance: CHOLECALCIFEROL
  8. LIPITOR [Concomitant]
     Active Substance: ATORVASTATIN CALCIUM
  9. ASPIRIN. [Concomitant]
     Active Substance: ASPIRIN
  10. NEPHRO-CALCI [Concomitant]
  11. RISPERIDONE. [Concomitant]
     Active Substance: RISPERIDONE

REACTIONS (2)
  - Osteomyelitis [Unknown]
  - Purulent discharge [Unknown]

NARRATIVE: CASE EVENT DATE: 20160822
